FAERS Safety Report 6303646-9 (Version None)
Quarter: 2009Q3

REPORT INFORMATION
  Report Type: 
  Country: None (occurrence: None)
  Receive Date: 20090807
  Receipt Date: 20090807
  Transmission Date: 20100115
  Serious: Yes (Hospitalization, Other)
  Sender: FDA-Public Use
  Company Number: None

PATIENT
  Sex: Male
  Weight: 93.8946 kg

DRUGS (1)
  1. BYETTA [Suspect]
     Indication: TYPE 2 DIABETES MELLITUS
     Dosage: 10 MCG, BID, SQ
     Route: 058
     Dates: start: 20070301, end: 20090805

REACTIONS (5)
  - HYPOTENSION [None]
  - INCORRECT STORAGE OF DRUG [None]
  - LIP SWELLING [None]
  - PRURITUS [None]
  - VISION BLURRED [None]
